FAERS Safety Report 6569228-9 (Version None)
Quarter: 2010Q1

REPORT INFORMATION
  Report Type: 
  Country: None (occurrence: None)
  Receive Date: 20100201
  Receipt Date: 20100201
  Transmission Date: 20100710
  Serious: Yes (Disabling)
  Sender: FDA-Public Use
  Company Number: None

PATIENT
  Age: 72 Year
  Sex: Female
  Weight: 61.2356 kg

DRUGS (1)
  1. ENALAPRIL MALEATE [Suspect]
     Indication: HYPERTENSION
     Dosage: 30 MG DAILY PO
     Route: 048
     Dates: start: 20080101, end: 20100129

REACTIONS (3)
  - GINGIVAL SWELLING [None]
  - LIP SWELLING [None]
  - SWELLING FACE [None]
